APPROVED DRUG PRODUCT: ZITHROMAX
Active Ingredient: AZITHROMYCIN
Strength: EQ 500MG BASE
Dosage Form/Route: TABLET;ORAL
Application: N050784 | Product #001 | TE Code: AB
Applicant: PFIZER INC
Approved: May 24, 2002 | RLD: Yes | RS: No | Type: RX